FAERS Safety Report 6645010-9 (Version None)
Quarter: 2010Q1

REPORT INFORMATION
  Report Type: 
  Country: None (occurrence: None)
  Receive Date: 20100322
  Receipt Date: 20100312
  Transmission Date: 20100710
  Serious: Yes (Hospitalization)
  Sender: FDA-Public Use
  Company Number: PHHY2010IT08054

PATIENT
  Sex: Male

DRUGS (6)
  1. VOLTAREN [Suspect]
     Indication: HYPERPYREXIA
     Dosage: 75MG/3ML
     Route: 030
     Dates: start: 20100128, end: 20100130
  2. ARACYTINE [Suspect]
     Indication: ACUTE LYMPHOCYTIC LEUKAEMIA
     Dosage: 100MG/5ML
     Dates: start: 20100112, end: 20100116
  3. EVOLTRA [Suspect]
     Indication: ACUTE LYMPHOCYTIC LEUKAEMIA
     Dosage: 1MG/ML
     Dates: start: 20100112, end: 20100116
  4. METHOTREXAT [Concomitant]
     Dosage: 25MG/ML
     Dates: start: 20100112, end: 20100112
  5. CYTARABINE [Concomitant]
     Indication: ACUTE LYMPHOCYTIC LEUKAEMIA
     Dosage: 100 MG/5 ML
     Dates: start: 20100112, end: 20100112
  6. URBASON [Concomitant]
     Dosage: 40MG/ML
     Dates: start: 20100112, end: 20100112

REACTIONS (2)
  - ANURIA [None]
  - BACTERAEMIA [None]
